FAERS Safety Report 5369393-5 (Version None)
Quarter: 2007Q2

REPORT INFORMATION
  Report Type: 
  Country: None (occurrence: None)
  Receive Date: 20070620
  Receipt Date: 20070604
  Transmission Date: 20071010
  Serious: Yes (Hospitalization)
  Sender: FDA-Public Use
  Company Number: 8024273

PATIENT
  Sex: Female

DRUGS (4)
  1. KEPPRA [Suspect]
     Indication: PARTIAL SEIZURES
     Dosage: 1500 MG 1/D
  2. KEPPRA [Suspect]
     Indication: PARTIAL SEIZURES
     Dosage: 1000 MG 1/D
  3. KEPPRA [Suspect]
     Indication: PARTIAL SEIZURES
     Dosage: 3000 MG 1/D
  4. ERGENYL [Concomitant]

REACTIONS (11)
  - AGITATION [None]
  - APHASIA [None]
  - APRAXIA [None]
  - DEMENTIA [None]
  - DEPRESSED LEVEL OF CONSCIOUSNESS [None]
  - DISORIENTATION [None]
  - GRAND MAL CONVULSION [None]
  - PERSEVERATION [None]
  - SOMNOLENCE [None]
  - UNRESPONSIVE TO STIMULI [None]
  - WEIGHT DECREASED [None]
